FAERS Safety Report 7499852-0 (Version None)
Quarter: 2011Q2

REPORT INFORMATION
  Report Type: 
  Country: None (occurrence: None)
  Receive Date: 20110524
  Receipt Date: 20110517
  Transmission Date: 20111010
  Serious: Yes (Other)
  Sender: FDA-Public Use
  Company Number: JP-ELI_LILLY_AND_COMPANY-JP201103008640

PATIENT
  Sex: Male

DRUGS (7)
  1. PANVITAN [Concomitant]
     Dosage: UNK
     Route: 048
     Dates: start: 20110322
  2. VITAMIN B-12 [Concomitant]
     Dosage: UNK
     Route: 030
     Dates: start: 20110322
  3. ALIMTA [Suspect]
     Indication: LUNG ADENOCARCINOMA STAGE IV
     Dosage: 780 MG, UNK
     Route: 042
     Dates: start: 20110322, end: 20110322
  4. LASIX [Concomitant]
     Indication: POLYURIA
     Dosage: 20 MG, UNK
     Route: 042
     Dates: start: 20110323, end: 20110324
  5. ALOXI [Concomitant]
     Indication: PROPHYLAXIS
     Dosage: 0.75 MG, UNK
     Route: 042
     Dates: start: 20110322, end: 20110322
  6. MANNITOL [Concomitant]
     Indication: POLYURIA
     Dosage: 200 UNK, UNK
     Route: 042
     Dates: start: 20110322, end: 20110322
  7. RANDA [Concomitant]
     Indication: LUNG ADENOCARCINOMA STAGE IV
     Dosage: 110 MG, UNK
     Route: 042
     Dates: start: 20110322, end: 20110322

REACTIONS (2)
  - RENAL FAILURE [None]
  - INAPPROPRIATE ANTIDIURETIC HORMONE SECRETION [None]
